FAERS Safety Report 14515250 (Version 2)
Quarter: 2018Q3

REPORT INFORMATION
  Report Type: Spontaneous
  Country: US (occurrence: US)
  Receive Date: 20180210
  Receipt Date: 20180709
  Transmission Date: 20181010
  Serious: No
  Sender: FDA-Public Use
  Company Number: US-BAXTER-2018BAX004418

PATIENT
  Sex: Female
  Weight: 81.18 kg

DRUGS (2)
  1. TYMLOS [Suspect]
     Active Substance: ABALOPARATIDE
     Indication: OSTEOPOROSIS POSTMENOPAUSAL
     Dosage: REGIMEN 1
     Route: 058
     Dates: start: 201801
  2. CYCLOPHOSPHAMIDE FOR INJECTION, USP [Suspect]
     Active Substance: CYCLOPHOSPHAMIDE
     Indication: EYE DISORDER
     Route: 065

REACTIONS (3)
  - Skin exfoliation [Unknown]
  - Alopecia [Unknown]
  - Nausea [Not Recovered/Not Resolved]
